FAERS Safety Report 9044226 (Version 2)
Quarter: 2013Q1

REPORT INFORMATION
  Report Type: Spontaneous
  Country: AR (occurrence: AR)
  Receive Date: 20130130
  Receipt Date: 20130217
  Transmission Date: 20140127
  Serious: Yes (Hospitalization)
  Sender: FDA-Public Use
  Company Number: AR-BRISTOL-MYERS SQUIBB COMPANY-17062027

PATIENT
  Age: 69 Year
  Sex: Female

DRUGS (1)
  1. YERVOY [Suspect]
     Indication: MALIGNANT MELANOMA
     Dosage: 1 DF: 5 UNITS OF 50 MG PER INF?4 VIALS OF 50MG PER INF?RECENT DOSE 10DEC12
     Dates: start: 20120903

REACTIONS (8)
  - Vaginal haemorrhage [Unknown]
  - Neoplasm [Unknown]
  - Local swelling [Unknown]
  - Swelling face [Unknown]
  - General physical health deterioration [Unknown]
  - Pain [Unknown]
  - Decreased appetite [Unknown]
  - Hypoaesthesia [Unknown]
